FAERS Safety Report 9949322 (Version 2)
Quarter: 2014Q2

REPORT INFORMATION
  Report Type: Spontaneous
  Country: US (occurrence: None)
  Receive Date: 20140122
  Receipt Date: 20140421
  Transmission Date: 20141212
  Serious: Yes (Other)
  Sender: FDA-Public Use
  Company Number: AEGR000234

PATIENT
  Age: 73 Year
  Sex: Female
  Weight: 65.3 kg

DRUGS (1)
  1. JUXTAPID [Suspect]
     Indication: PRODUCT USED FOR UNKNOWN INDICATION
     Route: 048
     Dates: start: 201311, end: 20131208

REACTIONS (6)
  - Product used for unknown indication [None]
  - Malaise [None]
  - Pain [None]
  - Diarrhoea [None]
  - Dyspepsia [None]
  - Abdominal pain [None]
